FAERS Safety Report 4941589-3 (Version None)
Quarter: 2006Q1

REPORT INFORMATION
  Report Type: 
  Country: None (occurrence: None)
  Receive Date: 20060313
  Receipt Date: 20060302
  Transmission Date: 20060701
  Serious: Yes (Death, Hospitalization)
  Sender: FDA-Public Use
  Company Number: US-AVENTIS-200612029US

PATIENT
  Sex: Male

DRUGS (8)
  1. KETEK [Suspect]
     Indication: SINUSITIS
     Route: 048
     Dates: start: 20051128, end: 20050101
  2. KETEK [Suspect]
     Indication: BRONCHITIS
     Route: 048
     Dates: start: 20051128, end: 20050101
  3. DAYPRO [Concomitant]
     Dosage: DOSE: UNK
  4. HYDROCHLOROTHIAZIDE [Concomitant]
     Dosage: DOSE: UNK
  5. CLORAZEPATE DIPOTASSIUM [Concomitant]
     Indication: ANXIETY
     Dosage: DOSE: UNK
  6. NIACIN [Concomitant]
     Dosage: DOSE: UNK
  7. ASPIRIN [Concomitant]
     Dosage: DOSE: UNK
  8. PREVACID [Concomitant]

REACTIONS (8)
  - ACUTE RESPIRATORY DISTRESS SYNDROME [None]
  - COUGH [None]
  - DIARRHOEA [None]
  - MALAISE [None]
  - PARAESTHESIA [None]
  - PNEUMONIA [None]
  - PYREXIA [None]
  - WEIGHT DECREASED [None]
